FAERS Safety Report 9513176 (Version 1)
Quarter: 2013Q1

REPORT INFORMATION
  Report Type: Spontaneous
  Country: US (occurrence: None)
  Receive Date: 20130305
  Receipt Date: 20130305
  Transmission Date: 20140127
  Serious: Yes (Other)
  Sender: FDA-Public Use
  Company Number: 163-21880-12080181

PATIENT
  Age: 50 Year
  Sex: Male

DRUGS (2)
  1. REVLIMID ( LENALIDOMIDE) ( CAPSULES) [Suspect]
     Indication: PLASMA CELL MYELOMA
     Dosage: 5 MG, 1 IN 1 D, PO
     Route: 048
     Dates: start: 20120628
  2. VITAMIN D ( ERGOCALCIFEROL) [Concomitant]

REACTIONS (1)
  - Drug dose omission [None]
